FAERS Safety Report 9619499 (Version 2)
Quarter: 2013Q4

REPORT INFORMATION
  Report Type: Report from Study
  Country: US (occurrence: US)
  Receive Date: 20131014
  Receipt Date: 20131025
  Transmission Date: 20140711
  Serious: Yes (Other)
  Sender: FDA-Public Use
  Company Number: US-PFIZER INC-2013290944

PATIENT
  Age: 21 Year
  Sex: Female
  Weight: 58.96 kg

DRUGS (4)
  1. RAPAMUNE [Suspect]
     Indication: TRANSPLANT
     Dosage: 1.5 MG, 1X/DAY
     Route: 048
  2. MYCOPHENOLIC ACID [Suspect]
     Indication: TRANSPLANT
     Dosage: 360 MG, 2X/DAY
     Route: 048
  3. PREDNISONE [Suspect]
     Indication: TRANSPLANT
     Dosage: 2.5 MG, 1X/DAY
     Route: 048
  4. ASPIRIN [Suspect]
     Dosage: 81 MG, 1X/DAY
     Route: 048

REACTIONS (1)
  - Abortion spontaneous [Unknown]
